FAERS Safety Report 8248092-6 (Version None)
Quarter: 2012Q1

REPORT INFORMATION
  Report Type: 
  Country: None (occurrence: None)
  Receive Date: 20120330
  Receipt Date: 20120319
  Transmission Date: 20120608
  Serious: Yes (Hospitalization, Other)
  Sender: FDA-Public Use
  Company Number: US-JNJFOC-20120200510

PATIENT
  Sex: Male
  Weight: 126.1 kg

DRUGS (8)
  1. METFORMIN HCL [Concomitant]
     Route: 065
  2. PRAVASTATIN [Concomitant]
     Route: 065
  3. WARFARIN SODIUM [Concomitant]
     Dosage: 5 MG ALTERNATING WITH 7.5 MG EVERY OTHER DAY
     Route: 065
  4. REMICADE [Suspect]
     Indication: CROHN'S DISEASE
     Route: 042
     Dates: start: 20070101, end: 20111001
  5. COLCHICINE [Concomitant]
     Route: 065
  6. PROTONIX [Concomitant]
     Route: 065
  7. PENTASA [Concomitant]
     Indication: CROHN'S DISEASE
     Route: 065
     Dates: start: 20070101
  8. ALLOPURINOL [Concomitant]
     Route: 065

REACTIONS (6)
  - DIABETES MELLITUS [None]
  - WEIGHT DECREASED [None]
  - ANTIPHOSPHOLIPID ANTIBODIES POSITIVE [None]
  - SPLENIC INFARCTION [None]
  - ABSCESS [None]
  - ARTERIAL THROMBOSIS [None]
